FAERS Safety Report 15922161 (Version 2)
Quarter: 2019Q1

REPORT INFORMATION
  Report Type: Spontaneous
  Country: IL (occurrence: IL)
  Receive Date: 20190206
  Receipt Date: 20190305
  Transmission Date: 20190417
  Serious: Yes (Life-Threatening, Hospitalization, Other)
  Sender: FDA-Public Use
  Company Number: IL-BAXTER-2019BAX002204

PATIENT
  Age: 62 Year
  Sex: Male
  Weight: 100 kg

DRUGS (13)
  1. PERCOCET [Suspect]
     Active Substance: ACETAMINOPHEN\OXYCODONE HYDROCHLORIDE
     Indication: ANALGESIC THERAPY
     Route: 065
     Dates: start: 201901
  2. VANCOMYCIN INJECTION, USP [Suspect]
     Active Substance: VANCOMYCIN
     Indication: STREPTOCOCCAL BACTERAEMIA
     Route: 065
  3. CEFTRIAXONE. [Suspect]
     Active Substance: CEFTRIAXONE
     Indication: STREPTOCOCCAL BACTERAEMIA
     Dosage: IN THE USA
     Route: 065
     Dates: start: 2018
  4. CEFTRIAXONE. [Suspect]
     Active Substance: CEFTRIAXONE
     Dosage: THRICE
     Route: 065
  5. CLEXANE [Suspect]
     Active Substance: ENOXAPARIN SODIUM
     Indication: PRODUCT USED FOR UNKNOWN INDICATION
     Route: 058
     Dates: start: 201901
  6. CEFTAZIDIME. [Suspect]
     Active Substance: CEFTAZIDIME
     Indication: STREPTOCOCCAL BACTERAEMIA
     Dosage: IN ISRAEL
     Route: 065
     Dates: start: 201812
  7. TARGIN [Suspect]
     Active Substance: NALOXONE HYDROCHLORIDE\OXYCODONE HYDROCHLORIDE
     Indication: ANALGESIC THERAPY
     Route: 065
     Dates: start: 201901
  8. ENOXAPARIN SODIUM. [Concomitant]
     Active Substance: ENOXAPARIN SODIUM
     Indication: PRODUCT USED FOR UNKNOWN INDICATION
     Route: 058
  9. VANCOMYCIN [Suspect]
     Active Substance: VANCOMYCIN
     Indication: STREPTOCOCCAL BACTERAEMIA
     Dosage: AT HOSPITAL, 1+1.25 GRAMS
     Route: 065
     Dates: start: 201812
  10. VANCOMYCIN [Suspect]
     Active Substance: VANCOMYCIN
     Dosage: AT HOME,
     Route: 065
     Dates: end: 201901
  11. METFORMIN HCL [Concomitant]
     Active Substance: METFORMIN HYDROCHLORIDE
     Indication: TYPE 2 DIABETES MELLITUS
     Route: 048
  12. NACL 0.9% INTRAVENOUS SOLUTION BP [Suspect]
     Active Substance: SODIUM CHLORIDE
     Indication: MEDICATION DILUTION
     Dosage: SOLVENT FOR PENICILLIN G SODIUM
     Route: 065
     Dates: start: 201901, end: 20190125
  13. PENICILLIN G SODIUM. [Suspect]
     Active Substance: PENICILLIN G SODIUM
     Indication: STREPTOCOCCAL BACTERAEMIA
     Route: 065
     Dates: start: 201901, end: 20190125

REACTIONS (29)
  - Drug hypersensitivity [Recovering/Resolving]
  - Hepatic failure [Recovered/Resolved]
  - Asthenia [Unknown]
  - Blood calcium decreased [Unknown]
  - Drug resistance [Unknown]
  - Feeling abnormal [Recovering/Resolving]
  - Apparent death [Recovering/Resolving]
  - Vomiting [Recovering/Resolving]
  - Hypophagia [Recovering/Resolving]
  - Oxygen saturation decreased [Recovering/Resolving]
  - Ageusia [Not Recovered/Not Resolved]
  - Feeding disorder [Unknown]
  - Urinary incontinence [Unknown]
  - Confusional state [Recovering/Resolving]
  - Pallor [Recovering/Resolving]
  - Dry mouth [Unknown]
  - Pelvic pain [Unknown]
  - Extradural abscess [Unknown]
  - Septic shock [Unknown]
  - Vitamin D decreased [Unknown]
  - Metabolic acidosis [Unknown]
  - Oral discomfort [Unknown]
  - Blood lactic acid increased [Unknown]
  - Dyspepsia [Recovering/Resolving]
  - Vital functions abnormal [Recovering/Resolving]
  - Decreased appetite [Not Recovered/Not Resolved]
  - Acute kidney injury [Recovering/Resolving]
  - Condition aggravated [Recovering/Resolving]
  - Nausea [Recovering/Resolving]

NARRATIVE: CASE EVENT DATE: 201812
